FAERS Safety Report 13458188 (Version 1)
Quarter: 2017Q2

REPORT INFORMATION
  Report Type: Spontaneous
  Country: US (occurrence: US)
  Receive Date: 20170419
  Receipt Date: 20170419
  Transmission Date: 20170830
  Serious: No
  Sender: FDA-Public Use
  Company Number: US-JNJFOC-20170417061

PATIENT
  Age: 9 Decade
  Sex: Female

DRUGS (1)
  1. TYLENOL REGULAR STRENGTH [Suspect]
     Active Substance: ACETAMINOPHEN
     Indication: TOOTHACHE
     Dosage: START DATE: 2 YEARS AGO
     Route: 048

REACTIONS (2)
  - Expired product administered [Recovered/Resolved]
  - Syncope [Recovered/Resolved]
